FAERS Safety Report 5127852-4 (Version None)
Quarter: 2006Q4

REPORT INFORMATION
  Report Type: 
  Country: None (occurrence: None)
  Receive Date: 20061016
  Receipt Date: 20060310
  Transmission Date: 20070319
  Serious: Yes (Hospitalization)
  Sender: FDA-Public Use
  Company Number: PL-BRISTOL-MYERS SQUIBB COMPANY-13309893

PATIENT
  Age: 52 Year
  Sex: Male
  Weight: 109 kg

DRUGS (6)
  1. CISPLATIN [Suspect]
     Indication: BLADDER CANCER
     Dates: start: 20040319, end: 20040706
  2. PACLITAXEL [Suspect]
     Indication: BLADDER CANCER
     Dates: start: 20040319, end: 20040713
  3. GEMCITABINE [Suspect]
     Indication: BLADDER CANCER
     Dates: start: 20040319, end: 20040713
  4. ONDANSETRON [Concomitant]
     Dates: start: 20040322
  5. OMEPRAZOLE [Concomitant]
     Dates: start: 20040322
  6. CETIRIZINE HCL [Concomitant]
     Dates: start: 20040501

REACTIONS (1)
  - SEPSIS [None]
